FAERS Safety Report 7530291-X (Version None)
Quarter: 2011Q2

REPORT INFORMATION
  Report Type: 
  Country: None (occurrence: None)
  Receive Date: 20110607
  Receipt Date: 20110527
  Transmission Date: 20111010
  Serious: Yes (Other)
  Sender: FDA-Public Use
  Company Number: CA-JNJFOC-20110600678

PATIENT
  Sex: Male
  Weight: 94.35 kg

DRUGS (8)
  1. ATENOLOL [Concomitant]
  2. PENTASA [Concomitant]
  3. IMURAN [Concomitant]
  4. REMICADE [Suspect]
     Indication: CROHN'S DISEASE
     Route: 042
     Dates: start: 20050901
  5. HYDRA-ZIDE [Concomitant]
  6. PAXIL [Concomitant]
  7. CHOLESTYRAMINE [Concomitant]
  8. WELLBUTRIN [Concomitant]

REACTIONS (2)
  - NEPHROLITHIASIS [None]
  - CROHN'S DISEASE [None]
